FAERS Safety Report 21267516 (Version 1)
Quarter: 2022Q3

REPORT INFORMATION
  Report Type: Spontaneous
  Country: GB (occurrence: GB)
  Receive Date: 20220829
  Receipt Date: 20220829
  Transmission Date: 20221026
  Serious: Yes (Disabling, Other)
  Sender: FDA-Public Use
  Company Number: GB-MHRA-MED-202208250947136420-GSLTY

PATIENT
  Age: 13 Year
  Sex: Male
  Weight: 106 kg

DRUGS (29)
  1. DAPTOMYCIN [Suspect]
     Active Substance: DAPTOMYCIN
     Dosage: 490MG ONCE DAILY
     Dates: start: 20220806, end: 20220811
  2. CALCIUM [Concomitant]
     Active Substance: CALCIUM
  3. CEFOTAXIME [Concomitant]
     Active Substance: CEFOTAXIME SODIUM
  4. CLONIDINE [Concomitant]
     Active Substance: CLONIDINE
  5. DEXAMETHASONE [Concomitant]
     Active Substance: DEXAMETHASONE
  6. ERYTHROMYCIN [Concomitant]
     Active Substance: ERYTHROMYCIN
  7. FENTANYL [Concomitant]
     Active Substance: FENTANYL
  8. FUROSEMIDE [Concomitant]
     Active Substance: FUROSEMIDE
  9. HEPARIN [Concomitant]
     Active Substance: HEPARIN SODIUM
  10. KETAMINE [Concomitant]
     Active Substance: KETAMINE
  11. LACTULOSE [Concomitant]
     Active Substance: LACTULOSE
  12. LEVETIRACETAM [Concomitant]
     Active Substance: LEVETIRACETAM
  13. LINEZOLID [Concomitant]
     Active Substance: LINEZOLID
  14. MEROPENEM [Concomitant]
     Active Substance: MEROPENEM
  15. MICAFUNGIN [Concomitant]
     Active Substance: MICAFUNGIN
  16. MIDAZOLAM [Concomitant]
     Active Substance: MIDAZOLAM
  17. POLYETHYLENE GLYCOL 3350\POTASSIUM CHLORIDE\SODIUM BICARBONATE\SODIUM [Concomitant]
     Active Substance: POLYETHYLENE GLYCOL 3350\POTASSIUM CHLORIDE\SODIUM BICARBONATE\SODIUM CHLORIDE
  18. NORADRENALINUM [Concomitant]
  19. OMEPRAZOLE [Concomitant]
     Active Substance: OMEPRAZOLE
  20. ACETAMINOPHEN [Concomitant]
     Active Substance: ACETAMINOPHEN
  21. PHENYTOIN [Concomitant]
     Active Substance: PHENYTOIN
  22. POTASSIUM CHLORIDE [Concomitant]
     Active Substance: POTASSIUM CHLORIDE
  23. PROMETHAZINE [Concomitant]
     Active Substance: PROMETHAZINE HYDROCHLORIDE
  24. PROPOFOL [Concomitant]
     Active Substance: PROPOFOL
  25. ROCURONIUM [Concomitant]
     Active Substance: ROCURONIUM BROMIDE
  26. SENNA+ [Concomitant]
  27. VALPROATE SODIUM [Concomitant]
     Active Substance: VALPROATE SODIUM
  28. THIOPENTAL [Concomitant]
     Active Substance: THIOPENTAL
  29. VANCOMYCIN [Concomitant]
     Active Substance: VANCOMYCIN

REACTIONS (1)
  - Myositis [Recovering/Resolving]

NARRATIVE: CASE EVENT DATE: 20220811
